FAERS Safety Report 18962654 (Version 1)
Quarter: 2021Q1

REPORT INFORMATION
  Report Type: Spontaneous
  Country: US (occurrence: US)
  Receive Date: 20210302
  Receipt Date: 20210302
  Transmission Date: 20210420
  Serious: Yes (Hospitalization)
  Sender: FDA-Public Use
  Company Number: None

PATIENT
  Age: 69 Year
  Sex: Male

DRUGS (1)
  1. CEPHALEXIN  (CEPHALEXIN 250MG CAP) [Suspect]
     Active Substance: CEPHALEXIN
     Indication: INFECTION
     Dates: start: 20200914, end: 20200924

REACTIONS (1)
  - Thrombocytopenia [None]

NARRATIVE: CASE EVENT DATE: 20200924
